FAERS Safety Report 15635754 (Version 1)
Quarter: 2018Q4

REPORT INFORMATION
  Report Type: Spontaneous
  Country: CA (occurrence: CA)
  Receive Date: 20181120
  Receipt Date: 20181120
  Transmission Date: 20190205
  Serious: Yes (Disabling)
  Sender: FDA-Public Use
  Company Number: CA-TEVA-2018-CA-978141

PATIENT
  Age: 89 Year
  Sex: Female
  Weight: 80 kg

DRUGS (2)
  1. APO-ROSUVASTATIN [Suspect]
     Active Substance: ROSUVASTATIN
     Indication: LIPIDS INCREASED
  2. TEVA-ROSUVASTATIN [Suspect]
     Active Substance: ROSUVASTATIN
     Indication: LIPIDS INCREASED

REACTIONS (2)
  - Pain in extremity [Recovered/Resolved]
  - Product substitution issue [Recovered/Resolved]
